FAERS Safety Report 20442926 (Version 2)
Quarter: 2022Q1

REPORT INFORMATION
  Report Type: Spontaneous
  Country: TN (occurrence: TN)
  Receive Date: 20220208
  Receipt Date: 20220209
  Transmission Date: 20220423
  Serious: Yes (Other)
  Sender: FDA-Public Use
  Company Number: TN-BAUSCH-BL-2022-003011

PATIENT
  Age: 66 Year
  Sex: Female

DRUGS (1)
  1. LOTEMAX [Suspect]
     Active Substance: LOTEPREDNOL ETABONATE
     Indication: Postoperative care
     Route: 061
     Dates: start: 20220114

REACTIONS (4)
  - Keratic precipitates [Recovering/Resolving]
  - Vision blurred [Recovering/Resolving]
  - Instillation site pain [Recovering/Resolving]
  - Drug ineffective [Unknown]

NARRATIVE: CASE EVENT DATE: 20220118
